FAERS Safety Report 8359301-7 (Version None)
Quarter: 2012Q2

REPORT INFORMATION
  Report Type: 
  Country: None (occurrence: None)
  Receive Date: 20120515
  Receipt Date: 20120507
  Transmission Date: 20120825
  Serious: Yes (Hospitalization)
  Sender: FDA-Public Use
  Company Number: US-BAYER-2012-011086

PATIENT
  Age: 28 Year
  Sex: Female

DRUGS (5)
  1. YAZ [Suspect]
     Indication: ACNE
     Dosage: UNK
     Dates: start: 20080901, end: 20090101
  2. SEROQUEL [Concomitant]
     Indication: SLEEP DISORDER THERAPY
     Dosage: 25 MG/DAY
     Route: 048
     Dates: start: 20080703
  3. ATIVAN [Concomitant]
     Dosage: UNK
  4. ALBUTEROL [Concomitant]
     Dosage: UNK
     Route: 048
  5. CELEXA [Concomitant]
     Indication: DEPRESSION
     Dosage: 20 MG/DAY
     Route: 048
     Dates: start: 20080703

REACTIONS (6)
  - EMOTIONAL DISTRESS [None]
  - PULMONARY EMBOLISM [None]
  - PAIN [None]
  - ANXIETY [None]
  - GENERAL PHYSICAL HEALTH DETERIORATION [None]
  - INJURY [None]
